FAERS Safety Report 4481734-X (Version None)
Quarter: 2004Q4

REPORT INFORMATION
  Report Type: 
  Country: None (occurrence: None)
  Receive Date: 20041021
  Receipt Date: 20041012
  Transmission Date: 20050328
  Serious: Yes (Life-Threatening, Hospitalization, Disabling)
  Sender: FDA-Public Use
  Company Number: US-MERCK-0410USA01762

PATIENT
  Age: 64 Year
  Sex: Female

DRUGS (9)
  1. VIOXX [Suspect]
     Indication: ARTHRALGIA
     Route: 048
     Dates: start: 20020101, end: 20040901
  2. NEURONTIN [Concomitant]
     Route: 065
  3. ASPIRIN [Concomitant]
     Route: 065
  4. ALEVE [Concomitant]
     Route: 065
  5. TOPROL-XL [Concomitant]
     Route: 065
  6. ZOCOR [Concomitant]
     Route: 065
  7. PLAVIX [Concomitant]
     Route: 065
  8. [THERAPY UNSPECIFIED] [Concomitant]
     Route: 065
  9. XANAX [Concomitant]
     Route: 065

REACTIONS (1)
  - MYOCARDIAL INFARCTION [None]
